FAERS Safety Report 8274356-6 (Version None)
Quarter: 2012Q2

REPORT INFORMATION
  Report Type: 
  Country: None (occurrence: None)
  Receive Date: 20120411
  Receipt Date: 20120328
  Transmission Date: 20120825
  Serious: Yes (Other)
  Sender: FDA-Public Use
  Company Number: US-SHIRE-ALL1-2012-01803

PATIENT
  Sex: Male
  Weight: 101.13 kg

DRUGS (3)
  1. FLAGYL [Concomitant]
     Indication: TRICHOMONIASIS
     Dosage: UNK UNK ( 4 TABLETS), ONE DOSE
     Route: 048
     Dates: start: 20120326, end: 20120326
  2. VYVANSE [Suspect]
     Indication: ATTENTION DEFICIT/HYPERACTIVITY DISORDER
     Dosage: 30 MG, 1X/DAY:QD
     Route: 048
     Dates: start: 20120326, end: 20120327
  3. PERCOCET [Concomitant]
     Indication: ARTHRALGIA
     Dosage: 5 MG, OTHER(EVERY 4- 8 HOURS)
     Route: 048
     Dates: start: 20120322

REACTIONS (10)
  - PALPITATIONS [None]
  - DIZZINESS [None]
  - HYPOAESTHESIA [None]
  - LOGORRHOEA [None]
  - SKIN DISCOLOURATION [None]
  - FEAR [None]
  - HYPERTENSION [None]
  - CHEST DISCOMFORT [None]
  - INITIAL INSOMNIA [None]
  - TREMOR [None]
